FAERS Safety Report 5149551-5 (Version None)
Quarter: 2006Q4

REPORT INFORMATION
  Report Type: 
  Country: None (occurrence: None)
  Receive Date: 20061113
  Receipt Date: 20060417
  Transmission Date: 20070319
  Serious: No
  Sender: FDA-Public Use
  Company Number: 444940

PATIENT
  Age: 62 Year
  Sex: Male

DRUGS (10)
  1. COREG [Suspect]
     Indication: DRUG USE FOR UNKNOWN INDICATION
     Dosage: 25 PER DAY
     Route: 048
  2. WARFARIN SODIUM [Concomitant]
  3. DARVOCET [Concomitant]
  4. LIPITOR [Concomitant]
  5. TRICOR [Concomitant]
  6. COVERA-HS [Concomitant]
  7. METFORMIN [Concomitant]
  8. PREVACID [Concomitant]
  9. VALIUM [Concomitant]
  10. MIRALAX [Concomitant]

REACTIONS (2)
  - CONSTIPATION [None]
  - FATIGUE [None]
